FAERS Safety Report 9552998 (Version 1)
Quarter: 2013Q3

REPORT INFORMATION
  Report Type: Spontaneous
  Country: US (occurrence: None)
  Receive Date: 20130911
  Receipt Date: 20130911
  Transmission Date: 20140515
  Serious: Yes (Other)
  Sender: FDA-Public Use
  Company Number: 2013037773

PATIENT
  Sex: Female

DRUGS (1)
  1. PRIVIGEN (IMMUNE GLOBULIN INTRAVENOUS (HUMAN) 10% LIQUID) [Suspect]

REACTIONS (8)
  - Bladder spasm [None]
  - Muscle spasms [None]
  - Pyrexia [None]
  - Headache [None]
  - Injection site haemorrhage [None]
  - Injection site bruising [None]
  - Petechiae [None]
  - Platelet count decreased [None]
